FAERS Safety Report 5464318-6 (Version None)
Quarter: 2007Q3

REPORT INFORMATION
  Report Type: 
  Country: None (occurrence: None)
  Receive Date: 20070921
  Receipt Date: 20070913
  Transmission Date: 20080115
  Serious: Yes (Hospitalization)
  Sender: FDA-Public Use
  Company Number: US-ELI_LILLY_AND_COMPANY-US200707001885

PATIENT
  Age: 64 Year
  Sex: Male
  Weight: 90.702 kg

DRUGS (10)
  1. BYETTA [Suspect]
     Indication: TYPE 2 DIABETES MELLITUS
     Dosage: 5 UG, 2/D
     Route: 058
     Dates: start: 20051110, end: 20051210
  2. BYETTA [Suspect]
     Dosage: 10 UG, 2/D
     Route: 058
     Dates: start: 20051210
  3. METFORMIN [Concomitant]
     Indication: TYPE 2 DIABETES MELLITUS
     Dates: start: 19970101
  4. ROSIGLITAZONE [Concomitant]
     Indication: TYPE 2 DIABETES MELLITUS
     Dates: start: 20020101
  5. ALLOPURINOL [Concomitant]
     Indication: GOUT
     Dates: start: 19770101
  6. COLCHICINE [Concomitant]
     Indication: GOUT
     Dates: start: 19770101
  7. DICYCLOMINE [Concomitant]
     Indication: INTESTINAL FUNCTIONAL DISORDER
     Dates: start: 20020101
  8. LOPERAMIDE HCL [Concomitant]
     Indication: INTESTINAL FUNCTIONAL DISORDER
     Dates: start: 19970101
  9. SIMVASTATIN [Concomitant]
     Indication: BLOOD CHOLESTEROL INCREASED
     Dates: start: 20020101
  10. BENAZEPRIL HYDROCHLORIDE [Concomitant]
     Indication: HYPERTENSION
     Dosage: UNK, UNK
     Dates: start: 20000101

REACTIONS (3)
  - BLOOD GLUCOSE INCREASED [None]
  - FALL [None]
  - LOWER LIMB FRACTURE [None]
